FAERS Safety Report 13598618 (Version 1)
Quarter: 2017Q2

REPORT INFORMATION
  Report Type: Spontaneous
  Country: US (occurrence: US)
  Receive Date: 20170531
  Receipt Date: 20170531
  Transmission Date: 20170830
  Serious: No
  Sender: FDA-Public Use
  Company Number: US-SA-2017SA091274

PATIENT
  Age: 56 Year
  Sex: Male

DRUGS (6)
  1. NOVOLOG [Concomitant]
     Active Substance: INSULIN ASPART
  2. SOLOSTAR [Suspect]
     Active Substance: DEVICE
     Indication: TYPE 2 DIABETES MELLITUS
     Dosage: WITH MEALS
     Dates: start: 20170515
  3. SOLOSTAR [Concomitant]
     Active Substance: DEVICE
  4. TOUJEO [Concomitant]
     Active Substance: INSULIN GLARGINE
  5. VICTOZA [Concomitant]
     Active Substance: LIRAGLUTIDE
  6. SOLIQUA 100/33 [Suspect]
     Active Substance: INSULIN GLARGINE\LIXISENATIDE
     Indication: TYPE 2 DIABETES MELLITUS
     Dosage: WITH MEALS DOSE:30 UNIT(S)
     Route: 065
     Dates: start: 20170515

REACTIONS (5)
  - Device issue [Unknown]
  - Device leakage [None]
  - Off label use [Unknown]
  - Incorrect dose administered by device [None]
  - Blood glucose increased [Unknown]

NARRATIVE: CASE EVENT DATE: 201705
